FAERS Safety Report 18908016 (Version 3)
Quarter: 2021Q3

REPORT INFORMATION
  Report Type: Other
  Country: BE (occurrence: BE)
  Receive Date: 20210218
  Receipt Date: 20210706
  Transmission Date: 20211014
  Serious: No
  Sender: FDA-Public Use
  Company Number: BE-ROCHE-2770131

PATIENT
  Age: 25 Year
  Sex: Female
  Weight: 52 kg

DRUGS (15)
  1. OCRELIZUMAB. [Suspect]
     Active Substance: OCRELIZUMAB
     Indication: RELAPSING-REMITTING MULTIPLE SCLEROSIS
     Dosage: 300MG/250ML?VISIT 3
     Route: 042
     Dates: start: 20200529, end: 20200529
  2. VITAMINE D [Concomitant]
     Active Substance: CHOLECALCIFEROL
     Indication: PROPHYLAXIS
     Dosage: 5000 U (UNIT)
     Route: 048
     Dates: start: 20200206
  3. SOLU?MEDROL [Concomitant]
     Active Substance: METHYLPREDNISOLONE SODIUM SUCCINATE
     Dosage: VISIT 3?ONCE BEFORE INFUSION
     Route: 042
     Dates: start: 20200529, end: 20200529
  4. DAFALGAN [Concomitant]
     Active Substance: ACETAMINOPHEN
     Dosage: ONCE BEFORE INFUSION
     Route: 048
     Dates: start: 20201221, end: 20201221
  5. OCRELIZUMAB. [Suspect]
     Active Substance: OCRELIZUMAB
     Indication: PRIMARY PROGRESSIVE MULTIPLE SCLEROSIS
     Dosage: 300MG/250ML?VISIT 2
     Route: 042
     Dates: start: 20200515, end: 20200515
  6. SOLU?MEDROL [Concomitant]
     Active Substance: METHYLPREDNISOLONE SODIUM SUCCINATE
     Dosage: VISIT 2?ONCE BEFORE INFUSION
     Route: 042
     Dates: start: 20200515, end: 20200515
  7. SOLU?MEDROL [Concomitant]
     Active Substance: METHYLPREDNISOLONE SODIUM SUCCINATE
     Dosage: VISIT 4?ONCE BEFORE INFUSION
     Route: 042
     Dates: start: 20201221, end: 20201221
  8. DAFALGAN [Concomitant]
     Active Substance: ACETAMINOPHEN
     Dosage: ONCE BEFORE INFUSION
     Route: 048
     Dates: start: 20200515, end: 20200515
  9. OCRELIZUMAB. [Suspect]
     Active Substance: OCRELIZUMAB
     Dosage: 600MG/500ML?VISIT 4
     Route: 042
     Dates: start: 20201221, end: 20201221
  10. Q10 [Concomitant]
     Active Substance: DIETARY SUPPLEMENT\UBIDECARENONE
     Indication: PROPHYLAXIS
     Route: 048
     Dates: start: 20200312
  11. PARACETAMOL [Concomitant]
     Active Substance: ACETAMINOPHEN
     Indication: ADVERSE EVENT
     Route: 048
     Dates: start: 20200916, end: 20200924
  12. DAFALGAN [Concomitant]
     Active Substance: ACETAMINOPHEN
     Dosage: ONCE BEFORE INFUSION
     Route: 048
     Dates: start: 20200529, end: 20200529
  13. CETIRIZINE [Concomitant]
     Active Substance: CETIRIZINE HYDROCHLORIDE
     Dosage: VISIT 2?ONCE BEFORE INFUSION
     Route: 048
     Dates: start: 20200515, end: 20200515
  14. CETIRIZINE [Concomitant]
     Active Substance: CETIRIZINE HYDROCHLORIDE
     Dosage: VISIT 3?ONCE BEFORE INFUSION
     Route: 048
     Dates: start: 20200529, end: 20200529
  15. CETIRIZINE [Concomitant]
     Active Substance: CETIRIZINE HYDROCHLORIDE
     Dosage: VISIT 4?ONCE BEFORE INFUSION
     Route: 048
     Dates: start: 20201221, end: 20201221

REACTIONS (1)
  - COVID-19 [Recovered/Resolved]

NARRATIVE: CASE EVENT DATE: 20200916
